FAERS Safety Report 8431507-8 (Version None)
Quarter: 2012Q2

REPORT INFORMATION
  Report Type: 
  Country: None (occurrence: None)
  Receive Date: 20120604
  Receipt Date: 20120521
  Transmission Date: 20120825
  Serious: Yes (Life-Threatening, Hospitalization, Disabling)
  Sender: FDA-Public Use
  Company Number: CRC-12-215

PATIENT
  Age: 59 Year
  Sex: Male

DRUGS (1)
  1. LITHIUM CARBONATE [Suspect]
     Indication: BIPOLAR DISORDER

REACTIONS (7)
  - CONTINUOUS HAEMODIAFILTRATION [None]
  - AXONAL NEUROPATHY [None]
  - MENTAL STATUS CHANGES [None]
  - TOXICITY TO VARIOUS AGENTS [None]
  - RENAL FAILURE ACUTE [None]
  - DIPLEGIA [None]
  - RHABDOMYOLYSIS [None]
